FAERS Safety Report 17972801 (Version 1)
Quarter: 2020Q3

REPORT INFORMATION
  Report Type: Spontaneous
  Country: US (occurrence: US)
  Receive Date: 20200701
  Receipt Date: 20200701
  Transmission Date: 20201103
  Serious: Yes (Hospitalization)
  Sender: FDA-Public Use
  Company Number: None

PATIENT
  Age: 71 Year
  Sex: Male
  Weight: 68 kg

DRUGS (2)
  1. VANCOMYCIN [Suspect]
     Active Substance: VANCOMYCIN
     Route: 042
     Dates: start: 20200520, end: 20200615
  2. CEFTRIAXONE. [Suspect]
     Active Substance: CEFTRIAXONE

REACTIONS (4)
  - Blister [None]
  - Rash [None]
  - Peripheral swelling [None]
  - Pyrexia [None]

NARRATIVE: CASE EVENT DATE: 20200615
